FAERS Safety Report 10684921 (Version 2)
Quarter: 2015Q1

REPORT INFORMATION
  Report Type: Spontaneous
  Country: CN (occurrence: CN)
  Receive Date: 20141231
  Receipt Date: 20150115
  Transmission Date: 20150720
  Serious: Yes (Hospitalization)
  Sender: FDA-Public Use
  Company Number: CN-ASTRAZENECA-2014SE83730

PATIENT
  Age: 80 Year
  Sex: Male

DRUGS (1)
  1. CASODEX [Suspect]
     Active Substance: BICALUTAMIDE
     Route: 048
     Dates: start: 20101013

REACTIONS (9)
  - Fall [Unknown]
  - Extrasystoles [Unknown]
  - Pain [Unknown]
  - Decreased appetite [Recovering/Resolving]
  - Muscle atrophy [Not Recovered/Not Resolved]
  - Anaemia [Unknown]
  - Cardiac disorder [Recovered/Resolved]
  - Thyroid neoplasm [Unknown]
  - Asthenia [Not Recovered/Not Resolved]

NARRATIVE: CASE EVENT DATE: 201310
